FAERS Safety Report 7513246-0 (Version None)
Quarter: 2011Q2

REPORT INFORMATION
  Report Type: 
  Country: None (occurrence: None)
  Receive Date: 20110531
  Receipt Date: 20110519
  Transmission Date: 20111010
  Serious: Yes (Hospitalization)
  Sender: FDA-Public Use
  Company Number: US-ASTRAZENECA-2011SE20730

PATIENT
  Sex: Female

DRUGS (1)
  1. PULMICORT FLEXHALER [Suspect]
     Dosage: TOTAL DAILY DOSE - 320 MCG, FREQUENCY - TWO TIMES A DAY
     Route: 055

REACTIONS (1)
  - DRUG DOSE OMISSION [None]
